FAERS Safety Report 10035410 (Version 1)
Quarter: 2014Q1

REPORT INFORMATION
  Report Type: Spontaneous
  Country: US (occurrence: US)
  Receive Date: 20140325
  Receipt Date: 20140325
  Transmission Date: 20141002
  Serious: No
  Sender: FDA-Public Use
  Company Number: US-PFIZER INC-2014082640

PATIENT
  Age: 72 Year
  Sex: Male
  Weight: 86.17 kg

DRUGS (2)
  1. ADVIL [Suspect]
     Indication: INFLAMMATION
     Dosage: UNK, DAILY
  2. ADVIL [Concomitant]
     Dosage: UNK

REACTIONS (1)
  - Dyspepsia [Unknown]
